FAERS Safety Report 9417228 (Version 1)
Quarter: 2013Q3

REPORT INFORMATION
  Report Type: Spontaneous
  Country: US (occurrence: US)
  Receive Date: 20130724
  Receipt Date: 20130724
  Transmission Date: 20140515
  Serious: No
  Sender: FDA-Public Use
  Company Number: US-BAUSCH-BL-2013-003024

PATIENT
  Age: 35 Year
  Sex: Male

DRUGS (1)
  1. OPCON-A [Suspect]
     Indication: OCULAR HYPERAEMIA
     Dosage: 1-2 DROP IN EACH EYE, ONCE DAILY AS NEEDED
     Route: 047
     Dates: start: 2008

REACTIONS (1)
  - Headache [Not Recovered/Not Resolved]
